FAERS Safety Report 18261624 (Version 1)
Quarter: 2020Q3

REPORT INFORMATION
  Report Type: Spontaneous
  Country: US (occurrence: US)
  Receive Date: 20200911
  Receipt Date: 20200911
  Transmission Date: 20201103
  Serious: Yes (Other)
  Sender: FDA-Public Use
  Company Number: None

PATIENT
  Age: 66 Year
  Sex: Female
  Weight: 54 kg

DRUGS (11)
  1. CAPECITABINE. [Concomitant]
     Active Substance: CAPECITABINE
  2. AMLODIPINE [Concomitant]
     Active Substance: AMLODIPINE BESYLATE
  3. ONDANSETRON [Concomitant]
     Active Substance: ONDANSETRON
  4. FISH OIL [Concomitant]
     Active Substance: FISH OIL
  5. LEVAQUIN [Concomitant]
     Active Substance: LEVOFLOXACIN
  6. BACITRACIN ZINC. [Concomitant]
     Active Substance: BACITRACIN ZINC
  7. COLACE [Concomitant]
     Active Substance: DOCUSATE SODIUM
  8. ERBITUX [Concomitant]
     Active Substance: CETUXIMAB
  9. BRAFTOVI [Suspect]
     Active Substance: ENCORAFENIB
     Indication: COLON CANCER
     Route: 048
     Dates: start: 20200729
  10. CHLORHEXIDINE [Concomitant]
     Active Substance: CHLORHEXIDINE
  11. LOPERAMIDE [Concomitant]
     Active Substance: LOPERAMIDE

REACTIONS (5)
  - Gingival bleeding [None]
  - Dry eye [None]
  - Dry skin [None]
  - Pruritus [None]
  - Eye pruritus [None]

NARRATIVE: CASE EVENT DATE: 20200911
